FAERS Safety Report 9476839 (Version 1)
Quarter: 2013Q3

REPORT INFORMATION
  Report Type: Spontaneous
  Country: US (occurrence: US)
  Receive Date: 20130826
  Receipt Date: 20130826
  Transmission Date: 20140515
  Serious: No
  Sender: FDA-Public Use
  Company Number: US-TARO-2013P1000831

PATIENT
  Sex: Male
  Weight: 63.5 kg

DRUGS (2)
  1. CLOBETASOL PROPIONATE CREAM USP 0.05% [Suspect]
     Route: 061
     Dates: start: 201209, end: 2012
  2. CLOBETASOL PROPIONATE CREAM USP 0.05% [Suspect]
     Route: 061
     Dates: start: 2012, end: 201212

REACTIONS (4)
  - Drug ineffective [Not Recovered/Not Resolved]
  - Application site dryness [Recovered/Resolved]
  - Application site pain [Recovered/Resolved]
  - Skin wound [Recovered/Resolved]
